FAERS Safety Report 6043524-6 (Version None)
Quarter: 2009Q1

REPORT INFORMATION
  Report Type: 
  Country: None (occurrence: None)
  Receive Date: 20090115
  Receipt Date: 20090107
  Transmission Date: 20090719
  Serious: Yes (Other)
  Sender: FDA-Public Use
  Company Number: 2009SP000519

PATIENT
  Age: 40 Year
  Sex: Female

DRUGS (4)
  1. INTRON A [Suspect]
     Indication: HEPATITIS C
     Dosage: SC
     Route: 058
  2. REBETOL [Suspect]
     Indication: HEPATITIS C
     Dosage: PO
     Route: 048
  3. PEGASYS [Suspect]
     Indication: HEPATITIS C
     Dosage: SC
     Route: 058
  4. COPEGUS [Suspect]
     Indication: HEPATITIS C
     Dosage: PO
     Route: 048

REACTIONS (2)
  - DRUG INEFFECTIVE [None]
  - GLAUCOMA [None]
